FAERS Safety Report 7961831-4 (Version None)
Quarter: 2011Q4

REPORT INFORMATION
  Report Type: 
  Country: None (occurrence: None)
  Receive Date: 20111207
  Receipt Date: 20111207
  Transmission Date: 20120403
  Serious: Yes (Life-Threatening)
  Sender: FDA-Public Use
  Company Number: None

PATIENT
  Age: 44 Year
  Sex: Female
  Weight: 72.574 kg

DRUGS (1)
  1. CHLORZOXAZONE [Suspect]
     Indication: MUSCLE SPASMS
     Dosage: 1 TAB
     Route: 048
     Dates: start: 20111116, end: 20111126

REACTIONS (3)
  - HEPATIC ENZYME INCREASED [None]
  - PAIN [None]
  - CHROMATURIA [None]
